FAERS Safety Report 19841328 (Version 2)
Quarter: 2021Q4

REPORT INFORMATION
  Report Type: Spontaneous
  Country: JP (occurrence: JP)
  Receive Date: 20210916
  Receipt Date: 20211010
  Transmission Date: 20220303
  Serious: Yes (Other)
  Sender: FDA-Public Use
  Company Number: JP-CHUGAI-2021016942

PATIENT
  Age: 53 Year
  Sex: Male

DRUGS (6)
  1. ACTEMRA [Suspect]
     Active Substance: TOCILIZUMAB
     Indication: Cytokine release syndrome
     Dosage: 0.1 UNK
     Route: 041
  2. KYMRIAH [Suspect]
     Active Substance: TISAGENLECLEUCEL
     Indication: Diffuse large B-cell lymphoma recurrent
     Dosage: 3.2X10^8 CAR-POSITIVE VIABLE T CELLS
     Route: 041
     Dates: start: 20201012, end: 20201012
  3. RITUXAN [Concomitant]
     Active Substance: RITUXIMAB
     Route: 041
  4. GEMCITABINE HYDROCHLORIDE [Concomitant]
     Active Substance: GEMCITABINE HYDROCHLORIDE
  5. DEXAMETHASONE [Concomitant]
     Active Substance: DEXAMETHASONE
  6. CARBOPLATIN [Concomitant]
     Active Substance: CARBOPLATIN

REACTIONS (1)
  - Disease progression [Unknown]
